FAERS Safety Report 20906654 (Version 1)
Quarter: 2022Q2

REPORT INFORMATION
  Report Type: Spontaneous
  Country: US (occurrence: None)
  Receive Date: 20220602
  Receipt Date: 20220602
  Transmission Date: 20220721
  Serious: No
  Sender: FDA-Public Use
  Company Number: None

PATIENT
  Sex: Male
  Weight: 81 kg

DRUGS (1)
  1. FLUOXETINE [Suspect]
     Active Substance: FLUOXETINE HYDROCHLORIDE
     Indication: Anxiety
     Dosage: FREQUENCY : DAILY;?
     Route: 048

REACTIONS (9)
  - Nervousness [None]
  - Agitation [None]
  - Hyperhidrosis [None]
  - Insomnia [None]
  - Fatigue [None]
  - Abnormal dreams [None]
  - Nightmare [None]
  - Anxiety [None]
  - Restlessness [None]
